FAERS Safety Report 5180916-1 (Version None)
Quarter: 2006Q4

REPORT INFORMATION
  Report Type: 
  Country: None (occurrence: None)
  Receive Date: 20061215
  Receipt Date: 20061215
  Transmission Date: 20070319
  Serious: Yes (Hospitalization)
  Sender: FDA-Public Use
  Company Number: None

PATIENT
  Age: 70 Year
  Sex: Female

DRUGS (13)
  1. METHOTREXATE [Suspect]
     Indication: RHEUMATOID ARTHRITIS
     Dosage: 25MG WEEKLY
     Dates: start: 19910101, end: 20060101
  2. ASPIRIN [Concomitant]
  3. SIMVASTATIN [Concomitant]
  4. LISINOPRIL [Concomitant]
  5. METOPROLOL SUCCINATE [Concomitant]
  6. GLIMEPRIDE [Concomitant]
  7. PREDNISONE [Concomitant]
  8. LEVOTHYROXINE SODIUM [Concomitant]
  9. HYDROCODONE BITARTRATE + ACETAMINOPHEN [Concomitant]
  10. QUININE SULFATE [Concomitant]
  11. POTASSIUM CHLORIDE [Concomitant]
  12. FOLIC ACID [Concomitant]
  13. WARFARIN SODIUM [Concomitant]

REACTIONS (8)
  - CHEST PAIN [None]
  - COMPUTERISED TOMOGRAM ABNORMAL [None]
  - DEHYDRATION [None]
  - LETHARGY [None]
  - OXYGEN SATURATION DECREASED [None]
  - PLEURITIC PAIN [None]
  - PNEUMONITIS [None]
  - SEPSIS SYNDROME [None]
